FAERS Safety Report 9755900 (Version 1)
Quarter: 2013Q4

REPORT INFORMATION
  Report Type: Spontaneous
  Country: US (occurrence: US)
  Receive Date: 20131213
  Receipt Date: 20131213
  Transmission Date: 20140711
  Serious: No
  Sender: FDA-Public Use
  Company Number: US-GLAXOSMITHKLINE-A1025838A

PATIENT
  Age: 47 Year
  Sex: Male

DRUGS (1)
  1. TARGET NTS CLEAR 14 MG [Suspect]
     Indication: EX-TOBACCO USER
     Dates: start: 2013, end: 20130603

REACTIONS (8)
  - Application site pruritus [Not Recovered/Not Resolved]
  - Application site erythema [Not Recovered/Not Resolved]
  - Application site irritation [Not Recovered/Not Resolved]
  - Application site reaction [Not Recovered/Not Resolved]
  - Application site urticaria [Not Recovered/Not Resolved]
  - Application site burn [Not Recovered/Not Resolved]
  - Application site rash [Not Recovered/Not Resolved]
  - Application site scar [Not Recovered/Not Resolved]
